FAERS Safety Report 5898437-7 (Version None)
Quarter: 2008Q3

REPORT INFORMATION
  Report Type: 
  Country: None (occurrence: None)
  Receive Date: 20080925
  Receipt Date: 20071105
  Transmission Date: 20090109
  Serious: No
  Sender: FDA-Public Use
  Company Number: A0691434A

PATIENT
  Sex: Female

DRUGS (6)
  1. WELLBUTRIN XL [Suspect]
     Indication: DEPRESSION
     Dosage: 150MG PER DAY
     Route: 048
     Dates: start: 20071023
  2. VALPROIC ACID [Concomitant]
  3. METOPROLOL TARTRATE [Concomitant]
  4. TAMOXIFEN CITRATE [Concomitant]
  5. SEROQUEL [Concomitant]
  6. OXYBUTYNIN CHLORIDE [Concomitant]

REACTIONS (1)
  - TREMOR [None]
